FAERS Safety Report 5379104-5 (Version None)
Quarter: 2007Q2

REPORT INFORMATION
  Report Type: 
  Country: None (occurrence: None)
  Receive Date: 20070530
  Receipt Date: 20070220
  Transmission Date: 20071010
  Serious: No
  Sender: FDA-Public Use
  Company Number: 2007PV030414

PATIENT
  Age: 55 Year
  Sex: Male

DRUGS (5)
  1. BYETTA [Suspect]
     Indication: DIABETES MELLITUS NON-INSULIN-DEPENDENT
     Dosage: 10 MCG; BID; SC
     Route: 058
     Dates: start: 20070202, end: 20070213
  2. ANTIBIOTIC [Suspect]
     Indication: BRONCHITIS
     Dates: end: 20070220
  3. METFORMIN HCL [Concomitant]
  4. ACTOS [Concomitant]
  5. ANTIBOTIC [Concomitant]

REACTIONS (4)
  - BRONCHITIS [None]
  - NAUSEA [None]
  - SINUSITIS [None]
  - VOMITING [None]
